FAERS Safety Report 18990907 (Version 5)
Quarter: 2021Q3

REPORT INFORMATION
  Report Type: Spontaneous
  Country: US (occurrence: US)
  Receive Date: 20210310
  Receipt Date: 20210809
  Transmission Date: 20211014
  Serious: Yes (Other)
  Sender: FDA-Public Use
  Company Number: US-SA-2021SA080051

PATIENT
  Age: 82 Year
  Sex: Female

DRUGS (2)
  1. DUPIXENT [Suspect]
     Active Substance: DUPILUMAB
     Indication: DERMATITIS ATOPIC
     Dosage: 300 MG, QOW
     Route: 058
     Dates: start: 20191217, end: 2021
  2. ELIQUIS [Concomitant]
     Active Substance: APIXABAN
     Dosage: UNK

REACTIONS (6)
  - Lacrimation increased [Unknown]
  - Visual impairment [Unknown]
  - Spontaneous haemorrhage [Recovering/Resolving]
  - Pruritus [Not Recovered/Not Resolved]
  - Eye disorder [Recovered/Resolved]
  - Eye pruritus [Unknown]

NARRATIVE: CASE EVENT DATE: 2021
